FAERS Safety Report 18792563 (Version 1)
Quarter: 2021Q1

REPORT INFORMATION
  Report Type: Spontaneous
  Country: CA (occurrence: CA)
  Receive Date: 20210127
  Receipt Date: 20210127
  Transmission Date: 20210419
  Serious: Yes (Hospitalization)
  Sender: FDA-Public Use
  Company Number: CA-TEVA-2021-CA-1871228

PATIENT
  Age: 69 Year
  Sex: Female
  Weight: 78 kg

DRUGS (16)
  1. ATORVASTATIN [Concomitant]
     Active Substance: ATORVASTATIN
  2. LOPERAMIDE [Concomitant]
     Active Substance: LOPERAMIDE
  3. DUOTRAV PQ [Concomitant]
     Active Substance: TIMOLOL\TRAVOPROST
  4. AZOPT [Concomitant]
     Active Substance: BRINZOLAMIDE
     Dosage: SUSPENSION OPHTHALMIC
  5. GLAXAL BASE CRM [Concomitant]
  6. VITAMIN D3 [Concomitant]
     Active Substance: CHOLECALCIFEROL
  7. ACH?CAPECITABINE [Suspect]
     Active Substance: CAPECITABINE
     Dosage: 4000 MILLIGRAM DAILY;
     Route: 048
  8. RANITIDINE. [Concomitant]
     Active Substance: RANITIDINE
  9. ZENHALE [Concomitant]
     Active Substance: FORMOTEROL FUMARATE\MOMETASONE FUROATE
     Dosage: AEROSOL, METERED DOSE
  10. IMIPRAMINE [Concomitant]
     Active Substance: IMIPRAMINE
  11. VITAMIN B12 [Concomitant]
     Active Substance: CYANOCOBALAMIN
  12. OXALIPLATIN INJECTION SINGLE USE VIALS [Suspect]
     Active Substance: OXALIPLATIN
     Route: 041
  13. ACETAMINOPHEN. [Concomitant]
     Active Substance: ACETAMINOPHEN
  14. METOCLOPRAMIDE. [Concomitant]
     Active Substance: METOCLOPRAMIDE
  15. ESOMEPRAZOLE. [Concomitant]
     Active Substance: ESOMEPRAZOLE MAGNESIUM
  16. SYNTHROID [Concomitant]
     Active Substance: LEVOTHYROXINE SODIUM

REACTIONS (11)
  - Electrolyte imbalance [Recovered/Resolved]
  - Enteritis [Recovered/Resolved]
  - Decreased appetite [Recovered/Resolved]
  - Diarrhoea [Recovered/Resolved]
  - Transaminases increased [Recovered/Resolved]
  - Generalised oedema [Recovered/Resolved]
  - Pancytopenia [Recovered/Resolved]
  - Starvation [Recovered/Resolved]
  - Vomiting [Recovered/Resolved]
  - Cytopenia [Recovered/Resolved]
  - Nausea [Recovered/Resolved]
